FAERS Safety Report 7484141-0 (Version None)
Quarter: 2011Q2

REPORT INFORMATION
  Report Type: 
  Country: None (occurrence: None)
  Receive Date: 20110517
  Receipt Date: 20110504
  Transmission Date: 20111010
  Serious: Yes (Hospitalization)
  Sender: FDA-Public Use
  Company Number: FR-ELI_LILLY_AND_COMPANY-FR201105001318

PATIENT
  Sex: Female

DRUGS (5)
  1. SOLIAN [Concomitant]
     Dosage: 200 MG, QD
  2. LEPTICUR [Concomitant]
     Dosage: UNK
     Route: 048
     Dates: end: 20110413
  3. ANAFRANIL [Concomitant]
     Dosage: 25 MG, QD
     Route: 048
     Dates: end: 20110414
  4. CYMBALTA [Suspect]
     Dosage: 90 MG, QD
     Route: 048
  5. SOLIAN [Concomitant]
     Route: 048

REACTIONS (2)
  - SUBILEUS [None]
  - ORTHOSTATIC HYPOTENSION [None]
